FAERS Safety Report 6542167-5 (Version None)
Quarter: 2010Q1

REPORT INFORMATION
  Report Type: 
  Country: None (occurrence: None)
  Receive Date: 20100119
  Receipt Date: 20100112
  Transmission Date: 20100710
  Serious: Yes (Death)
  Sender: FDA-Public Use
  Company Number: RU-ASTRAZENECA-2009SE33485

PATIENT
  Age: 56 Year
  Sex: Female

DRUGS (5)
  1. SEROQUEL [Suspect]
     Indication: SCHIZOPHRENIA
     Route: 048
  2. SEROQUEL [Suspect]
     Route: 048
     Dates: end: 20091222
  3. MODITEN-DEPOT [Concomitant]
     Indication: SCHIZOPHRENIA
  4. AZALEPTIN [Concomitant]
     Indication: SCHIZOPHRENIA
  5. AMITRIPTILIN [Concomitant]
     Indication: SCHIZOPHRENIA

REACTIONS (1)
  - PULMONARY EMBOLISM [None]
